FAERS Safety Report 4341701-3 (Version None)
Quarter: 2004Q2

REPORT INFORMATION
  Report Type: 
  Country: None (occurrence: None)
  Receive Date: 20040415
  Receipt Date: 20040329
  Transmission Date: 20050107
  Serious: Yes (Other)
  Sender: FDA-Public Use
  Company Number: GBS040314665

PATIENT
  Age: 68 Year
  Sex: Male
  Weight: 80 kg

DRUGS (9)
  1. TADALAFIL [Suspect]
     Indication: ERECTILE DYSFUNCTION
     Dosage: 1 DAG FORM DAY
     Dates: start: 20040322, end: 20040323
  2. AMLODIPINE [Concomitant]
  3. GLICLAZIDE [Concomitant]
  4. ASPIRIN [Concomitant]
  5. SIMVASTATIN [Concomitant]
  6. METFORMIN HCL [Concomitant]
  7. BISOPROLOL [Concomitant]
  8. LISINOPRIL [Concomitant]
  9. PROCHLORPERAZINE [Concomitant]

REACTIONS (1)
  - HAEMATURIA [None]
